FAERS Safety Report 22598117 (Version 1)
Quarter: 2023Q2

REPORT INFORMATION
  Report Type: Spontaneous
  Country: US (occurrence: None)
  Receive Date: 20230614
  Receipt Date: 20230614
  Transmission Date: 20230722
  Serious: Yes (Other)
  Sender: FDA-Public Use
  Company Number: US-MDD US Operations-MDD202211-003817

PATIENT
  Age: 65 Year
  Sex: Female

DRUGS (4)
  1. APOKYN [Suspect]
     Active Substance: APOMORPHINE HYDROCHLORIDE
     Indication: Parkinson^s disease
     Dates: start: 20221017
  2. APOKYN [Suspect]
     Active Substance: APOMORPHINE HYDROCHLORIDE
     Indication: On and off phenomenon
     Dosage: 10MG/ML 3ML
     Route: 058
  3. CARBIDOPA [Concomitant]
     Active Substance: CARBIDOPA
     Dosage: NOT PROVIDED
  4. LEVODOPA [Concomitant]
     Active Substance: LEVODOPA
     Dosage: NOT PROVIDED

REACTIONS (4)
  - Hypersensitivity [Recovering/Resolving]
  - Taste disorder [Recovering/Resolving]
  - Haemorrhage [Recovering/Resolving]
  - Injection site reaction [Recovering/Resolving]
